FAERS Safety Report 5381859-0 (Version None)
Quarter: 2007Q3

REPORT INFORMATION
  Report Type: 
  Country: None (occurrence: None)
  Receive Date: 20070709
  Receipt Date: 20070628
  Transmission Date: 20080115
  Serious: Yes (Other)
  Sender: FDA-Public Use
  Company Number: DE-ROCHE-491443

PATIENT
  Sex: Male

DRUGS (2)
  1. ROFERON-A [Suspect]
     Indication: MALIGNANT MELANOMA
     Dosage: FORM REPORTED AS SYRINGE.
     Route: 065
     Dates: start: 20070223
  2. ROFERON-A [Suspect]
     Dosage: FORM REPORTED AS PEN.
     Route: 065

REACTIONS (5)
  - FATIGUE [None]
  - HAEMATOLOGY TEST ABNORMAL [None]
  - HEADACHE [None]
  - RESTLESSNESS [None]
  - SEMINOMA [None]
